FAERS Safety Report 11003416 (Version 1)
Quarter: 2015Q2

REPORT INFORMATION
  Report Type: Spontaneous
  Country: US (occurrence: None)
  Receive Date: 20150408
  Receipt Date: 20150408
  Transmission Date: 20150821
  Serious: Yes (Other)
  Sender: FDA-Public Use
  Company Number: None

PATIENT
  Age: 39 Year
  Sex: Female
  Weight: 79.38 kg

DRUGS (10)
  1. BUPROPION [Concomitant]
     Active Substance: BUPROPION
  2. MVI [Concomitant]
     Active Substance: VITAMINS
  3. GABAPTIN [Concomitant]
  4. BACLOFEN. [Concomitant]
     Active Substance: BACLOFEN
  5. TIZANIDINE (TIZANIDINE) [Concomitant]
     Active Substance: TIZANIDINE
  6. OMEPRAZOLE. [Concomitant]
     Active Substance: OMEPRAZOLE
  7. TYSABRI [Suspect]
     Active Substance: NATALIZUMAB
     Indication: MULTIPLE SCLEROSIS
     Dosage: STRENGTH: 300MG/ 15 M, DOSE FORM: INFUSION, FREQUENCY: Q MONTH, ROUTE: INTAVENOUS (NOT OTHERWISE SPECIFIED) 042
     Route: 042
     Dates: start: 2011, end: 2014
  8. PROBIOTIC [Concomitant]
     Active Substance: PROBIOTICS NOS
  9. TECFIDERA [Concomitant]
     Active Substance: DIMETHYL FUMARATE
  10. OXYBUTYNIN [Concomitant]
     Active Substance: OXYBUTYNIN

REACTIONS (2)
  - Thrombocytopenia [None]
  - JC virus test positive [None]

NARRATIVE: CASE EVENT DATE: 20140401
